FAERS Safety Report 10020653 (Version 1)
Quarter: 2013Q4

REPORT INFORMATION
  Report Type: Spontaneous
  Country: JP (occurrence: None)
  Receive Date: 20131122
  Receipt Date: 20131122
  Transmission Date: 20140711
  Serious: Yes (Disabling)
  Sender: FDA-Public Use
  Company Number: SYM-2013-12235

PATIENT
  Age: 50 Year
  Sex: Female

DRUGS (5)
  1. CHOREAZINE [Suspect]
     Indication: HUNTINGTON^S DISEASE
     Route: 048
     Dates: start: 20130605, end: 20130831
  2. RISPERIDAL OD (RISPERIDONE) (RISPERIDONE) [Concomitant]
  3. MEMARY (MEMANTINE HYDROCHLORIDE) (MEMANTINE HYDRCHLORIDE) [Concomitant]
  4. MEILAX (ETHYL LOFLAZEPATE) (ETHYL LOFLAZEPATE) [Concomitant]
  5. FAMOTIDINE D (FAMOTIDINE) (FAMOTIDINE) [Concomitant]

REACTIONS (4)
  - Asphyxia [None]
  - Aspiration [None]
  - Altered state of consciousness [None]
  - Hypoxic-ischaemic encephalopathy [None]
